FAERS Safety Report 13702505 (Version 2)
Quarter: 2017Q3

REPORT INFORMATION
  Report Type: Report from Study
  Country: US (occurrence: US)
  Receive Date: 20170629
  Receipt Date: 20170825
  Transmission Date: 20171127
  Serious: Yes (Death, Other)
  Sender: FDA-Public Use
  Company Number: US-UCBSA-2017024789

PATIENT
  Sex: Female
  Weight: 160 kg

DRUGS (1)
  1. LACOSAMIDE. [Suspect]
     Active Substance: LACOSAMIDE
     Indication: EPILEPSY
     Dosage: 10 MG/ML

REACTIONS (1)
  - Acute respiratory failure [Fatal]
